FAERS Safety Report 20002737 (Version 2)
Quarter: 2021Q4

REPORT INFORMATION
  Report Type: Report from Study
  Country: US (occurrence: US)
  Receive Date: 20211028
  Receipt Date: 20211112
  Transmission Date: 20220303
  Serious: Yes (Other)
  Sender: FDA-Public Use
  Company Number: US-ABBVIE-21K-163-4136115-00

PATIENT
  Sex: Female

DRUGS (2)
  1. IMBRUVICA [Suspect]
     Active Substance: IBRUTINIB
     Indication: Product used for unknown indication
     Route: 048
     Dates: start: 20210804, end: 20211022
  2. IMBRUVICA [Suspect]
     Active Substance: IBRUTINIB
     Route: 048
     Dates: start: 20211023

REACTIONS (8)
  - Medical device site haematoma [Recovering/Resolving]
  - Abnormal dreams [Recovering/Resolving]
  - Poor quality sleep [Recovering/Resolving]
  - Post procedural contusion [Unknown]
  - Post procedural haematoma [Unknown]
  - Mouth haemorrhage [Unknown]
  - Epistaxis [Unknown]
  - Petechiae [Recovering/Resolving]

NARRATIVE: CASE EVENT DATE: 20210101
